FAERS Safety Report 22134720 (Version 4)
Quarter: 2024Q1

REPORT INFORMATION
  Report Type: Spontaneous
  Country: US (occurrence: US)
  Receive Date: 20230324
  Receipt Date: 20240130
  Transmission Date: 20240409
  Serious: Yes (Life-Threatening)
  Sender: FDA-Public Use
  Company Number: US-GLAXOSMITHKLINE-US2020AMR242932

PATIENT

DRUGS (6)
  1. ZEJULA [Suspect]
     Active Substance: NIRAPARIB
     Indication: Ovarian cancer
     Dosage: 200 MG, QD
     Route: 048
     Dates: start: 20201007
  2. ZEJULA [Suspect]
     Active Substance: NIRAPARIB
     Dosage: 100 MG, QD
     Route: 048
     Dates: start: 20201223
  3. ZEJULA [Suspect]
     Active Substance: NIRAPARIB
     Dosage: 100 MG, QD
     Route: 048
  4. ZEJULA [Suspect]
     Active Substance: NIRAPARIB
     Indication: Ovarian cancer
     Dosage: 100 MG, QD
  5. ZEJULA [Suspect]
     Active Substance: NIRAPARIB
     Dosage: 100 MG, QD
     Route: 048
  6. BLACK COHOSH [Suspect]
     Active Substance: BLACK COHOSH
     Indication: Hyperhidrosis
     Dosage: UNK

REACTIONS (25)
  - Illness [Unknown]
  - Condition aggravated [Unknown]
  - Asthenia [Not Recovered/Not Resolved]
  - Fatigue [Not Recovered/Not Resolved]
  - Hot flush [Not Recovered/Not Resolved]
  - Nausea [Not Recovered/Not Resolved]
  - Platelet count decreased [Not Recovered/Not Resolved]
  - White blood cell count decreased [Recovered/Resolved]
  - Hand fracture [Recovering/Resolving]
  - Intra-abdominal fluid collection [Recovering/Resolving]
  - Abdominal pain [Recovered/Resolved]
  - Impaired healing [Recovering/Resolving]
  - Vomiting [Not Recovered/Not Resolved]
  - Red blood cell count decreased [Unknown]
  - Weight increased [Unknown]
  - Cough [Unknown]
  - Somnolence [Unknown]
  - Anxiety [Unknown]
  - Feeling abnormal [Unknown]
  - Pyrexia [Unknown]
  - Hyperhidrosis [Unknown]
  - Decreased appetite [Unknown]
  - Insomnia [Unknown]
  - Device dislocation [Unknown]
  - Product dose omission issue [Unknown]

NARRATIVE: CASE EVENT DATE: 20210301
